FAERS Safety Report 24249359 (Version 2)
Quarter: 2025Q2

REPORT INFORMATION
  Report Type: Spontaneous
  Country: US (occurrence: US)
  Receive Date: 20240826
  Receipt Date: 20250522
  Transmission Date: 20250716
  Serious: No
  Sender: ROCHE
  Company Number: US-ROCHE-10000062007

PATIENT
  Age: 77 Year
  Sex: Female
  Weight: 56.3 kg

DRUGS (3)
  1. TECENTRIQ [Suspect]
     Active Substance: ATEZOLIZUMAB
     Indication: Lung neoplasm malignant
     Route: 042
     Dates: start: 20240820
  2. DEXTROSE [Concomitant]
     Active Substance: DEXTROSE MONOHYDRATE
  3. SODIUM CHLORIDE [Concomitant]
     Active Substance: SODIUM CHLORIDE

REACTIONS (2)
  - Intercepted product preparation error [Unknown]
  - No adverse event [Unknown]
